FAERS Safety Report 6034159-X (Version None)
Quarter: 2009Q1

REPORT INFORMATION
  Report Type: 
  Country: None (occurrence: None)
  Receive Date: 20090112
  Receipt Date: 20081210
  Transmission Date: 20090719
  Serious: No
  Sender: FDA-Public Use
  Company Number: US-BAYER-200840934NA

PATIENT
  Sex: Female

DRUGS (1)
  1. OCELLA [Suspect]
     Indication: DRUG USE FOR UNKNOWN INDICATION
     Route: 048
     Dates: start: 20081001

REACTIONS (4)
  - ABDOMINAL PAIN [None]
  - ALOPECIA [None]
  - MENOMETRORRHAGIA [None]
  - MOOD SWINGS [None]
